FAERS Safety Report 9049211 (Version 1)
Quarter: 2013Q1

REPORT INFORMATION
  Report Type: Spontaneous
  Country: US (occurrence: None)
  Receive Date: 20130130
  Receipt Date: 20130130
  Transmission Date: 20140127
  Serious: Yes (Hospitalization, Other)
  Sender: FDA-Public Use
  Company Number: None

PATIENT
  Age: 42 Year
  Sex: Female
  Weight: 78.93 kg

DRUGS (2)
  1. LAMOTRIGINE [Suspect]
     Indication: DEPRESSION
     Route: 048
     Dates: start: 20120312
  2. LAMOTRIGINE [Suspect]
     Indication: MANIA
     Route: 048
     Dates: start: 20120312

REACTIONS (10)
  - Rash pruritic [None]
  - Rash erythematous [None]
  - Rash pustular [None]
  - Pain [None]
  - Swelling face [None]
  - Necrosis [None]
  - Scab [None]
  - Scar [None]
  - Cellulitis [None]
  - No therapeutic response [None]
